FAERS Safety Report 8335031-2 (Version None)
Quarter: 2012Q2

REPORT INFORMATION
  Report Type: 
  Country: None (occurrence: None)
  Receive Date: 20120503
  Receipt Date: 20100402
  Transmission Date: 20120825
  Serious: No
  Sender: FDA-Public Use
  Company Number: US-TEVA-2010001930

PATIENT
  Sex: Female
  Weight: 68.1 kg

DRUGS (3)
  1. COPAXONE [Concomitant]
     Indication: MULTIPLE SCLEROSIS
     Dates: start: 20080101
  2. NUVIGIL [Suspect]
     Indication: FATIGUE
     Dosage: 125 MILLIGRAM;
     Route: 048
     Dates: start: 20100401
  3. AMITRIPTYLINE HCL [Concomitant]
     Indication: HEADACHE
     Dosage: 37.5 MILLIGRAM;
     Dates: start: 20090101

REACTIONS (2)
  - PSYCHOMOTOR HYPERACTIVITY [None]
  - DRUG INEFFECTIVE FOR UNAPPROVED INDICATION [None]
